FAERS Safety Report 20702430 (Version 1)
Quarter: 2022Q2

REPORT INFORMATION
  Report Type: Spontaneous
  Country: US (occurrence: US)
  Receive Date: 20220412
  Receipt Date: 20220412
  Transmission Date: 20220721
  Serious: Yes (Hospitalization)
  Sender: FDA-Public Use
  Company Number: US-LUPIN PHARMACEUTICALS INC.-2022-05300

PATIENT
  Age: 13 Year
  Sex: Female
  Weight: 53 kg

DRUGS (9)
  1. LORAZEPAM [Suspect]
     Active Substance: LORAZEPAM
     Indication: Generalised tonic-clonic seizure
     Dosage: 0.04 MILLIGRAM/KILOGRAM, SINGLE
     Route: 065
  2. LORAZEPAM [Suspect]
     Active Substance: LORAZEPAM
     Dosage: 0.1 MILLIGRAM/KILOGRAM, SINGLE
     Route: 042
  3. LEVETIRACETAM [Suspect]
     Active Substance: LEVETIRACETAM
     Indication: Generalised tonic-clonic seizure
     Dosage: 35 MILLIGRAM/KILOGRAM, SINGLE
     Route: 042
  4. LEVETIRACETAM [Suspect]
     Active Substance: LEVETIRACETAM
     Dosage: 10 MILLIGRAM/KILOGRAM, BID, MAINTENANCE DOSE
     Route: 042
  5. LEVETIRACETAM [Suspect]
     Active Substance: LEVETIRACETAM
     Dosage: 30 MILLIGRAM/KILOGRAM, SINGLE
     Route: 042
  6. FUROSEMIDE [Concomitant]
     Active Substance: FUROSEMIDE
     Indication: Haemolytic uraemic syndrome
     Dosage: 40 MG
     Route: 042
  7. FUROSEMIDE [Concomitant]
     Active Substance: FUROSEMIDE
     Indication: Gastroenteritis Escherichia coli
     Dosage: 80 MG
     Route: 042
  8. ECULIZUMAB [Concomitant]
     Active Substance: ECULIZUMAB
     Indication: Haemolytic uraemic syndrome
     Dosage: 900 MG (15.5 MG/KG)
     Route: 065
  9. ECULIZUMAB [Concomitant]
     Active Substance: ECULIZUMAB
     Indication: Gastroenteritis Escherichia coli

REACTIONS (1)
  - Therapy non-responder [Unknown]
